FAERS Safety Report 8333599-3 (Version None)
Quarter: 2012Q2

REPORT INFORMATION
  Report Type: 
  Country: None (occurrence: None)
  Receive Date: 20120503
  Receipt Date: 20120427
  Transmission Date: 20120825
  Serious: Yes (Other)
  Sender: FDA-Public Use
  Company Number: PHHY2012BR037448

PATIENT
  Sex: Female

DRUGS (1)
  1. DIOVAN [Suspect]
     Dosage: 320 MG, DAILY

REACTIONS (11)
  - FALL [None]
  - OSTEOPOROSIS [None]
  - AGITATION [None]
  - BLOOD PRESSURE INCREASED [None]
  - ACCIDENT [None]
  - LOWER LIMB FRACTURE [None]
  - HYPERHIDROSIS [None]
  - UPPER LIMB FRACTURE [None]
  - WRIST FRACTURE [None]
  - PELVIC FRACTURE [None]
  - BLOOD PRESSURE FLUCTUATION [None]
